FAERS Safety Report 10691184 (Version 1)
Quarter: 2015Q1

REPORT INFORMATION
  Report Type: Spontaneous
  Country: NZ (occurrence: None)
  Receive Date: 20150102
  Receipt Date: 20150102
  Transmission Date: 20150720
  Serious: Yes (Hospitalization)
  Sender: FDA-Public Use
  Company Number: NZ-2014VAL000682

PATIENT
  Age: 77 Year
  Sex: Female

DRUGS (11)
  1. ASPIRIN (ACETYLSALICYLIC ACID) [Concomitant]
     Active Substance: ASPIRIN
  2. CLOPIDOGREL [Suspect]
     Active Substance: CLOPIDOGREL BISULFATE
     Indication: PROPHYLAXIS
     Dosage: 300 MG, SINGLE [LOADING DOSE]
  3. OMEPRAZOLE (OMEPRAZOLE) [Concomitant]
     Active Substance: OMEPRAZOLE
  4. CALCITRIOL (CALCITRIOL) [Concomitant]
     Active Substance: CALCITRIOL
  5. TIROFIBAN (TIROFIBAN) [Concomitant]
  6. SIMVASTATIN (SIMVASTATIN) [Concomitant]
     Active Substance: SIMVASTATIN
  7. CILAZAPRIL (CILAZAPRIL) [Concomitant]
     Active Substance: CILAZAPRIL ANHYDROUS
  8. METOPROLOL TARTRATE (METOPROLOL TARTRATE) UNKNOWN [Suspect]
     Active Substance: METOPROLOL TARTRATE
     Indication: PRODUCT USED FOR UNKNOWN INDICATION
     Dosage: 95 MG, QD
  9. ASPIRIN (ACETYLSALICYLIC ACID) [Concomitant]
     Active Substance: ASPIRIN
  10. CALCIUM CARBONATE (CALCIUM CARBONATE) [Concomitant]
  11. THYROXINE (LEVOTHYROXINE SODIUM) [Concomitant]
     Active Substance: LEVOTHYROXINE

REACTIONS (2)
  - Tachycardia [None]
  - Drug reaction with eosinophilia and systemic symptoms [None]
